FAERS Safety Report 20601713 (Version 3)
Quarter: 2022Q3

REPORT INFORMATION
  Report Type: Spontaneous
  Country: JP (occurrence: JP)
  Receive Date: 20220316
  Receipt Date: 20220715
  Transmission Date: 20221027
  Serious: Yes (Hospitalization, Other)
  Sender: FDA-Public Use
  Company Number: JP-GLAXOSMITHKLINE-JP2022JPN044958

PATIENT

DRUGS (14)
  1. VALTREX [Suspect]
     Active Substance: VALACYCLOVIR HYDROCHLORIDE
     Indication: Herpes zoster
     Dosage: 1000 MG, TID
     Route: 048
     Dates: start: 20220303, end: 20220305
  2. PREDNISOLONE [Concomitant]
     Active Substance: PREDNISOLONE
     Dosage: UNK
     Route: 048
  3. LANSOPRAZOLE-OD TABLETS [Concomitant]
     Dosage: UNK
     Route: 048
  4. DAIPHEN COMBINATION TABLETS [Concomitant]
     Dosage: UNK
     Route: 048
  5. ALENDRONATE SODIUM [Concomitant]
     Active Substance: ALENDRONATE SODIUM
     Dosage: UNK
     Route: 048
  6. CARVEDILOL [Concomitant]
     Active Substance: CARVEDILOL
     Dosage: UNK
     Route: 048
  7. QUETIAPINE FUMARATE [Concomitant]
     Active Substance: QUETIAPINE FUMARATE
     Dosage: UNK
     Route: 048
  8. FUROSEMIDE [Concomitant]
     Active Substance: FUROSEMIDE
     Dosage: UNK
     Route: 048
  9. CANDESARTAN CILEXETIL TABLET [Concomitant]
     Dosage: UNK
     Route: 048
  10. ALFACALCIDOL TABLET [Concomitant]
     Dosage: UNK
     Route: 048
  11. FEBUXOSTAT [Concomitant]
     Active Substance: FEBUXOSTAT
     Dosage: UNK
     Route: 048
  12. LANTHANUM CARBONATE [Concomitant]
     Active Substance: LANTHANUM CARBONATE
     Dosage: UNK
     Route: 048
  13. KREMEZIN [Concomitant]
     Active Substance: ACTIVATED CHARCOAL
     Dosage: UNK
     Route: 048
  14. WARFARIN POTASSIUM [Concomitant]
     Active Substance: WARFARIN POTASSIUM
     Dosage: UNK
     Route: 048

REACTIONS (13)
  - Encephalopathy [Recovering/Resolving]
  - Toxic encephalopathy [Unknown]
  - Feeding disorder [Unknown]
  - Gait disturbance [Unknown]
  - Altered state of consciousness [Unknown]
  - Freezing phenomenon [Unknown]
  - Mobility decreased [Unknown]
  - Dysarthria [Unknown]
  - Dyskinesia [Unknown]
  - Vision blurred [Unknown]
  - Vomiting [Unknown]
  - Muscular weakness [Unknown]
  - Prescribed overdose [Unknown]

NARRATIVE: CASE EVENT DATE: 20220304
